FAERS Safety Report 19499233 (Version 3)
Quarter: 2021Q3

REPORT INFORMATION
  Report Type: Spontaneous
  Country: US (occurrence: US)
  Receive Date: 20210707
  Receipt Date: 20210806
  Transmission Date: 20211014
  Serious: Yes (Hospitalization, Other)
  Sender: FDA-Public Use
  Company Number: US-FARMAPROD-202106-1018

PATIENT
  Age: 82 Year
  Sex: Female

DRUGS (14)
  1. ATROPINE SULFATE. [Concomitant]
     Active Substance: ATROPINE SULFATE
  2. OXERVATE [Suspect]
     Active Substance: CENEGERMIN-BKBJ
     Indication: ULCERATIVE KERATITIS
     Route: 047
     Dates: start: 20210609
  3. OMEPRAZOLE AND SODIUM BICARBONATE [Concomitant]
     Active Substance: OMEPRAZOLE\SODIUM BICARBONATE
  4. MOXIFLOXACIN. [Concomitant]
     Active Substance: MOXIFLOXACIN
  5. DOXYCYCLINE HYCLATE. [Concomitant]
     Active Substance: DOXYCYCLINE HYCLATE
  6. SYSTANE (HYPROMELLOSE 2910 (4000 MPA.S)) [Concomitant]
     Active Substance: HYPROMELLOSE 2910 (4000 MPA.S)
     Dosage: 0.3%?0.4%
  7. COMBIGAN [Concomitant]
     Active Substance: BRIMONIDINE TARTRATE\TIMOLOL MALEATE
     Dosage: 0.2%?0.5%
  8. TRAMADOL HCL [Concomitant]
     Active Substance: TRAMADOL HYDROCHLORIDE
  9. LOSARTAN POTASSIUM. [Concomitant]
     Active Substance: LOSARTAN POTASSIUM
  10. POTASSIUM [Concomitant]
     Active Substance: POTASSIUM
     Dosage: 595(99) MG
  11. BACITRACIN. [Concomitant]
     Active Substance: BACITRACIN
  12. ATIVAN [Concomitant]
     Active Substance: LORAZEPAM
  13. LASIX [Concomitant]
     Active Substance: FUROSEMIDE
  14. AMLODIPINE BESILATE [Concomitant]
     Active Substance: AMLODIPINE BESYLATE

REACTIONS (3)
  - Product dose omission issue [Unknown]
  - Eye operation [Unknown]
  - Pneumonia [Unknown]

NARRATIVE: CASE EVENT DATE: 202106
